FAERS Safety Report 6309912-5 (Version None)
Quarter: 2009Q3

REPORT INFORMATION
  Report Type: 
  Country: None (occurrence: None)
  Receive Date: 20090814
  Receipt Date: 20090806
  Transmission Date: 20100115
  Serious: Yes (Hospitalization)
  Sender: FDA-Public Use
  Company Number: A0801202A

PATIENT
  Age: 22 Year

DRUGS (3)
  1. LAMICTAL [Suspect]
     Dosage: 150MG TWICE PER DAY
     Route: 048
  2. KLONOPIN [Concomitant]
     Dosage: 4MG AT NIGHT
  3. SEROQUEL [Concomitant]

REACTIONS (2)
  - BLINDNESS [None]
  - BLINDNESS TRANSIENT [None]
